FAERS Safety Report 6627652-X (Version None)
Quarter: 2010Q1

REPORT INFORMATION
  Report Type: 
  Country: None (occurrence: None)
  Receive Date: 20100311
  Receipt Date: 20100305
  Transmission Date: 20100710
  Serious: Yes (Death, Hospitalization, Other)
  Sender: FDA-Public Use
  Company Number: MX-BAYER-200813213LA

PATIENT
  Age: 70 Year
  Sex: Male
  Weight: 78 kg

DRUGS (21)
  1. SORAFENIB [Suspect]
     Indication: NON-SMALL CELL LUNG CANCER
     Route: 065
     Dates: start: 20071127, end: 20080115
  2. GEMCITABINE [Suspect]
     Indication: NON-SMALL CELL LUNG CANCER
     Route: 042
     Dates: start: 20071127, end: 20080103
  3. CISPLATIN [Suspect]
     Indication: NON-SMALL CELL LUNG CANCER
     Route: 042
     Dates: start: 20071127, end: 20080103
  4. LOSARTAN POTASSIUM [Concomitant]
     Indication: HYPERTENSION
     Route: 048
     Dates: start: 20071108, end: 20080114
  5. LOSARTAN POTASSIUM [Concomitant]
     Route: 048
     Dates: start: 20071108, end: 20080115
  6. GLIBENCLAMIDE [Concomitant]
     Indication: DIABETES MELLITUS
     Route: 048
     Dates: start: 20071108, end: 20080115
  7. METFORMIN HYDROCHLORIDE [Concomitant]
     Indication: DIABETES MELLITUS
     Route: 048
     Dates: start: 20071108, end: 20080115
  8. METFORMIN HYDROCHLORIDE [Concomitant]
     Route: 048
     Dates: start: 20071108, end: 20080114
  9. AMLODIPINE [Concomitant]
     Indication: HYPERTENSION
     Route: 048
     Dates: start: 20071108, end: 20080115
  10. PROPAFENONE HCL [Concomitant]
     Indication: HYPERTENSION
     Route: 048
     Dates: start: 20071108, end: 20080115
  11. IPRATROPIUM BROMIDE [Concomitant]
     Indication: DYSPNOEA
     Route: 045
     Dates: start: 20071204, end: 20080115
  12. IPRATROPIUM BROMIDE [Concomitant]
     Route: 048
     Dates: start: 20071108, end: 20080114
  13. OMEPRAZOLE [Concomitant]
     Indication: PROPHYLAXIS
     Route: 042
     Dates: start: 20071218, end: 20080115
  14. OMEPRAZOLE [Concomitant]
     Route: 048
     Dates: start: 20071108, end: 20080114
  15. PARACETAMOL [Concomitant]
     Indication: DYSPNOEA
     Route: 042
     Dates: start: 20071108, end: 20080114
  16. PARACETAMOL [Concomitant]
     Route: 042
     Dates: start: 20071218, end: 20080115
  17. CODEINE SULFATE [Concomitant]
     Indication: DYSPNOEA
     Route: 048
     Dates: start: 20071108, end: 20080114
  18. ACETAMINOPHEN W/ CODEINE [Concomitant]
     Indication: COUGH
     Route: 042
     Dates: start: 20071218, end: 20080115
  19. AMIKACIN [Concomitant]
     Indication: ANTIBIOTIC THERAPY
     Route: 048
     Dates: start: 20071223, end: 20071227
  20. FLUCONAZOLE [Concomitant]
     Indication: ANTIBIOTIC THERAPY
     Route: 048
     Dates: start: 20071226, end: 20071226
  21. FLUCONAZOLE [Concomitant]
     Route: 048
     Dates: start: 20071227, end: 20071227

REACTIONS (9)
  - CARDIO-RESPIRATORY ARREST [None]
  - GASTROINTESTINAL TOXICITY [None]
  - HAEMATOTOXICITY [None]
  - MUCOSAL INFLAMMATION [None]
  - NEUTROPENIA [None]
  - PNEUMONIA [None]
  - RESPIRATORY DISTRESS [None]
  - STOMATITIS [None]
  - UPPER GASTROINTESTINAL HAEMORRHAGE [None]
